FAERS Safety Report 13709854 (Version 5)
Quarter: 2024Q4

REPORT INFORMATION
  Report Type: Report from Study
  Country: IL (occurrence: IL)
  Receive Date: 20170703
  Receipt Date: 20241219
  Transmission Date: 20250115
  Serious: Yes (Hospitalization, Other)
  Sender: TAKEDA
  Company Number: IL-SHIRE-IL201713155

PATIENT
  Age: 82 Year
  Sex: Male

DRUGS (11)
  1. VELAGLUCERASE ALFA [Suspect]
     Active Substance: VELAGLUCERASE ALFA
     Indication: Gaucher^s disease
     Dosage: 15 INTERNATIONAL UNIT/KILOGRAM, Q2WEEKS
     Dates: start: 20161129, end: 20180503
  2. LIPITOR [Concomitant]
     Active Substance: ATORVASTATIN CALCIUM
     Indication: Hypercholesterolaemia
     Dosage: 10 GRAM, QD
  3. INSULIN NOS [Concomitant]
     Active Substance: INSULIN NOS
     Indication: Diabetes mellitus
     Dosage: 100 INTERNATIONAL UNIT, BID
  4. FUSID [Concomitant]
     Indication: Renal failure
     Dosage: 40 MILLIGRAM, QD
  5. CADEX [Concomitant]
     Indication: Hypertension
     Dosage: 4 GRAM, QD
  6. ARANESP [Concomitant]
     Active Substance: DARBEPOETIN ALFA
     Indication: Anaemia
     Dosage: 10 MILLIGRAM, 2/WEEK
  7. APIDRA [Concomitant]
     Active Substance: INSULIN GLULISINE
     Indication: Diabetes mellitus
     Dosage: 13 INTERNATIONAL UNIT, TID
  8. ELIQUIS [Concomitant]
     Active Substance: APIXABAN
     Indication: Myocardial ischaemia
  9. CEFTRIAXONE SODIUM [Concomitant]
     Active Substance: CEFTRIAXONE SODIUM
     Indication: Pneumonia
     Dosage: UNK
     Dates: start: 20160328, end: 20160404
  10. UNSPECIFIED INGREDIENT [Concomitant]
     Active Substance: UNSPECIFIED INGREDIENT
     Indication: Pneumonia
     Dosage: UNK
     Dates: start: 20160328, end: 20160404
  11. Azenil [Concomitant]
     Indication: Pneumonia
     Dosage: UNK

REACTIONS (2)
  - Squamous cell carcinoma [Recovered/Resolved]
  - Plasma cell myeloma [Recovered/Resolved]

NARRATIVE: CASE EVENT DATE: 20170612
